FAERS Safety Report 13169423 (Version 4)
Quarter: 2017Q1

REPORT INFORMATION
  Report Type: Spontaneous
  Country: JP (occurrence: JP)
  Receive Date: 20170201
  Receipt Date: 20170213
  Transmission Date: 20170428
  Serious: Yes (Hospitalization, Other)
  Sender: FDA-Public Use
  Company Number: JP-009507513-1701JPN013181

PATIENT
  Age: 91 Year
  Sex: Female
  Weight: 67 kg

DRUGS (7)
  1. ACTOS [Concomitant]
     Active Substance: PIOGLITAZONE HYDROCHLORIDE
  2. AMLODIN OD [Concomitant]
     Active Substance: AMLODIPINE BESYLATE
  3. KINEDAK [Concomitant]
     Active Substance: EPALRESTAT
     Dosage: UNK
  4. GLACTIV [Suspect]
     Active Substance: SITAGLIPTIN
     Indication: TYPE 2 DIABETES MELLITUS
     Dosage: 50 MG, ONCE A DAY (STRENGTH 12.5MG,25MG, 50MG, 100MG)
     Route: 048
  5. AMARYL [Concomitant]
     Active Substance: GLIMEPIRIDE
     Dosage: UNK
  6. GLACTIV [Suspect]
     Active Substance: SITAGLIPTIN
     Dosage: 100 MG, ONCE A DAY (STRENGTH 12.5MG,25MG, 50MG, 100MG)
     Route: 048
  7. METHYCOBAL [Concomitant]
     Active Substance: METHYLCOBALAMIN

REACTIONS (1)
  - Hypoglycaemia [Unknown]
